FAERS Safety Report 6288928-1 (Version None)
Quarter: 2009Q3

REPORT INFORMATION
  Report Type: 
  Country: None (occurrence: None)
  Receive Date: 20090729
  Receipt Date: 20090715
  Transmission Date: 20100115
  Serious: Yes (Hospitalization)
  Sender: FDA-Public Use
  Company Number: DE-MYLANLABS-2009S1012653

PATIENT
  Age: 47 Year
  Sex: Female
  Weight: 74.6 kg

DRUGS (11)
  1. BISOPROLOL [Suspect]
     Indication: PALPITATIONS
     Route: 048
     Dates: start: 20080601
  2. PREDNISOLONE [Interacting]
     Indication: MIXED CONNECTIVE TISSUE DISEASE
     Dosage: QUENSYL WURDE ABGESETZT, AZATHIOPRIN EINGELEITET, PREDNISOLON-ERHOHUNG ZUR UBERLEITUNG
     Route: 048
     Dates: start: 20030101, end: 20090116
  3. PREDNISOLONE [Interacting]
     Route: 048
     Dates: start: 20090117, end: 20090128
  4. PREDNISOLONE [Interacting]
     Route: 048
     Dates: start: 20090129
  5. MYDOCALM /00293001/ [Interacting]
     Indication: MUSCULOSKELETAL PAIN
     Route: 048
     Dates: start: 20080901
  6. MYDOCALM /00293001/ [Interacting]
     Dates: start: 20090126
  7. QUENSYL [Interacting]
     Indication: MIXED CONNECTIVE TISSUE DISEASE
     Route: 048
     Dates: start: 20030101, end: 20090118
  8. CALCIMAGON-D3 [Concomitant]
     Indication: OSTEOPOROSIS PROPHYLAXIS
     Route: 048
     Dates: start: 20050101
  9. OMEPRAZOLE [Concomitant]
     Indication: PROPHYLAXIS AGAINST GASTROINTESTINAL ULCER
     Route: 048
     Dates: start: 20050101
  10. MCP /00041901/ [Concomitant]
     Indication: CHANGE OF BOWEL HABIT
     Route: 048
     Dates: start: 20050101
  11. IBUHEXAL /00109201/ [Concomitant]
     Indication: PAIN
     Route: 048
     Dates: start: 20050101

REACTIONS (2)
  - DRUG INTERACTION [None]
  - MYOSITIS [None]
